FAERS Safety Report 7971123-5 (Version None)
Quarter: 2011Q4

REPORT INFORMATION
  Report Type: 
  Country: None (occurrence: None)
  Receive Date: 20111212
  Receipt Date: 20111212
  Transmission Date: 20120403
  Serious: No
  Sender: FDA-Public Use
  Company Number: None

PATIENT
  Age: 68 Year
  Sex: Female
  Weight: 68.038 kg

DRUGS (1)
  1. CYMBALTA [Suspect]
     Indication: DEPRESSION
     Dosage: 60MG
     Route: 048
     Dates: start: 20090301, end: 20111117

REACTIONS (13)
  - VOMITING [None]
  - ANGER [None]
  - INFLUENZA [None]
  - PAIN [None]
  - TREMOR [None]
  - VERTIGO [None]
  - GAIT DISTURBANCE [None]
  - WITHDRAWAL SYNDROME [None]
  - MALAISE [None]
  - COLD SWEAT [None]
  - NIGHTMARE [None]
  - WEIGHT DECREASED [None]
  - TOXICITY TO VARIOUS AGENTS [None]
